FAERS Safety Report 8305632-6 (Version None)
Quarter: 2012Q2

REPORT INFORMATION
  Report Type: 
  Country: None (occurrence: None)
  Receive Date: 20120418
  Receipt Date: 20120404
  Transmission Date: 20120825
  Serious: Yes (Other)
  Sender: FDA-Public Use
  Company Number: 2012MA004687

PATIENT
  Age: 63 Year
  Sex: Male

DRUGS (7)
  1. SPIRONOLACTONE [Suspect]
     Indication: CARDIAC FAILURE
     Dosage: 25 MG;QD;PO
     Route: 048
     Dates: start: 20120221, end: 20120227
  2. BISOPROLOL FUMARATE [Concomitant]
  3. BUMETANIDE [Suspect]
     Indication: CARDIAC FAILURE
     Dosage: 2 MG;BID;IV
     Route: 042
     Dates: start: 20120225, end: 20120226
  4. METFORMIN HCL [Concomitant]
  5. FUROSEMIDE [Suspect]
     Indication: CARDIAC FAILURE
     Dosage: 80 MG;BID;IV
     Route: 042
     Dates: start: 20120223, end: 20120224
  6. LISINOPRIL [Concomitant]
  7. GABAPENTIN [Concomitant]

REACTIONS (1)
  - RASH GENERALISED [None]
